FAERS Safety Report 5517601-X (Version None)
Quarter: 2007Q4

REPORT INFORMATION
  Report Type: 
  Country: None (occurrence: None)
  Receive Date: 20071114
  Receipt Date: 20071105
  Transmission Date: 20080405
  Serious: Yes (Hospitalization)
  Sender: FDA-Public Use
  Company Number: CH-PFIZER INC-2007092654

PATIENT
  Age: 88 Year
  Sex: Female

DRUGS (4)
  1. ALDACTONE [Suspect]
     Dosage: FREQ:DAILY
     Route: 048
  2. COVERSUM [Suspect]
     Route: 048
  3. SINTROM [Concomitant]
     Route: 048
  4. METOPROLOL SUCCINATE [Concomitant]
     Route: 048

REACTIONS (2)
  - ELECTROCARDIOGRAM ABNORMAL [None]
  - HYPERKALAEMIA [None]
